FAERS Safety Report 9159775 (Version 1)
Quarter: 2013Q1

REPORT INFORMATION
  Report Type: Not Available
  Country: CA (occurrence: CA)
  Receive Date: 20130313
  Receipt Date: 20130313
  Transmission Date: 20140127
  Serious: Yes (Other)
  Sender: FDA-Public Use
  Company Number: CA-ASTELLAS-2013US002708

PATIENT
  Age: 78 Year
  Sex: Female

DRUGS (4)
  1. TARCEVA [Suspect]
     Indication: PRODUCT USED FOR UNKNOWN INDICATION
     Dosage: UNK
     Route: 048
  2. ZOMETA [Suspect]
     Indication: PRODUCT USED FOR UNKNOWN INDICATION
     Dosage: 4 MG, 1 IN 4 WEEKS
     Route: 042
  3. ANTINEOPLASTIC AGENTS [Concomitant]
     Indication: PRODUCT USED FOR UNKNOWN INDICATION
     Dosage: UNK
     Route: 065
  4. PREDNISONE [Concomitant]
     Indication: PRODUCT USED FOR UNKNOWN INDICATION
     Dosage: UNK
     Route: 065

REACTIONS (10)
  - Back pain [Unknown]
  - Blood pressure increased [Unknown]
  - Breath sounds abnormal [Unknown]
  - Lower respiratory tract infection [Unknown]
  - Rash erythematous [Unknown]
  - Cough [Unknown]
  - Diarrhoea [Unknown]
  - Nausea [Unknown]
  - Pruritus [Unknown]
  - Rash [Unknown]
